FAERS Safety Report 24159287 (Version 1)
Quarter: 2024Q3

REPORT INFORMATION
  Report Type: Spontaneous
  Country: US (occurrence: US)
  Receive Date: 20240731
  Receipt Date: 20240731
  Transmission Date: 20241017
  Serious: Yes (Other)
  Sender: JAZZ
  Company Number: US-JAZZ PHARMACEUTICALS-2024-US-011379

PATIENT

DRUGS (1)
  1. XYREM [Suspect]
     Active Substance: SODIUM OXYBATE
     Indication: Narcolepsy
     Dosage: UNK

REACTIONS (5)
  - Neoplasm malignant [Unknown]
  - Disability [Unknown]
  - Arthralgia [Unknown]
  - Road traffic accident [Unknown]
  - Pain [Unknown]
